FAERS Safety Report 4311924-8 (Version None)
Quarter: 2004Q1

REPORT INFORMATION
  Report Type: 
  Country: None (occurrence: None)
  Receive Date: 20040303
  Receipt Date: 20040216
  Transmission Date: 20041129
  Serious: Yes (Other)
  Sender: FDA-Public Use
  Company Number: 192445

PATIENT
  Age: 41 Year
  Sex: Female

DRUGS (3)
  1. AVONEX [Suspect]
     Indication: MULTIPLE SCLEROSIS
     Dosage: 30 MCG QW IM
     Route: 030
     Dates: start: 20030101
  2. DOLIPRANE [Concomitant]
  3. IBUPROFEN [Concomitant]

REACTIONS (4)
  - CONDYLOMA ACUMINATUM [None]
  - DYSPLASIA [None]
  - PRECANCEROUS CELLS PRESENT [None]
  - UTERINE CANCER [None]
